FAERS Safety Report 8246711-1 (Version None)
Quarter: 2012Q1

REPORT INFORMATION
  Report Type: 
  Country: None (occurrence: None)
  Receive Date: 20120330
  Receipt Date: 20120320
  Transmission Date: 20120608
  Serious: Yes (Other)
  Sender: FDA-Public Use
  Company Number: BR-AMGEN-BRASP2012018713

PATIENT
  Age: 25 Year
  Sex: Male
  Weight: 41 kg

DRUGS (2)
  1. ENBREL [Suspect]
     Indication: RHEUMATOID ARTHRITIS
     Dosage: 50 MG, ONCE WEEKLY
     Route: 058
  2. NIMESULIDE [Concomitant]
     Indication: PAIN
     Dosage: 10 MG, AS NEEDED

REACTIONS (2)
  - HEPATITIS [None]
  - ARTHRALGIA [None]
